FAERS Safety Report 4834596-2 (Version None)
Quarter: 2005Q4

REPORT INFORMATION
  Report Type: 
  Country: None (occurrence: None)
  Receive Date: 20051122
  Receipt Date: 20050502
  Transmission Date: 20060501
  Serious: No
  Sender: FDA-Public Use
  Company Number: US-BRISTOL-MYERS SQUIBB COMPANY-12952826

PATIENT
  Sex: Female
  Weight: 81 kg

DRUGS (7)
  1. PRAVACHOL [Suspect]
     Indication: BLOOD CHOLESTEROL INCREASED
     Dates: start: 20050423
  2. SYNTHROID [Concomitant]
  3. ACIPHEX [Concomitant]
  4. MENEST [Concomitant]
  5. KLONOPIN [Concomitant]
  6. LEVSIN [Concomitant]
  7. EXTRA STRENGTH TYLENOL [Concomitant]

REACTIONS (1)
  - MUSCULOSKELETAL STIFFNESS [None]
